FAERS Safety Report 9192609 (Version 2)
Quarter: 2013Q2

REPORT INFORMATION
  Report Type: Spontaneous
  Country: US (occurrence: US)
  Receive Date: 20130327
  Receipt Date: 20130503
  Transmission Date: 20140414
  Serious: No
  Sender: FDA-Public Use
  Company Number: US-PFIZER INC-2013096220

PATIENT
  Age: 68 Year
  Sex: Female

DRUGS (17)
  1. XELJANZ [Suspect]
     Indication: RHEUMATOID ARTHRITIS
     Dosage: 5 MG, 2X/DAY
     Dates: start: 201301
  2. NEURONTIN [Concomitant]
     Dosage: 600 MG
  3. DIOVAN HCT [Concomitant]
     Dosage: 160-25 MG, UNK
  4. METOCLOPRAMIDE [Concomitant]
     Dosage: 5 MG
  5. MINOCYCLINE [Concomitant]
     Dosage: 100 MG
  6. SIMVASTATIN [Concomitant]
     Dosage: 20 MG
  7. CARVEDILOL [Concomitant]
     Dosage: 25 MG
  8. ZANTAC [Concomitant]
     Dosage: 300 MG
  9. LEVOTHYROXINE [Concomitant]
     Dosage: 75 UG
  10. ESTRADIOL [Concomitant]
     Dosage: 0.025 MG, 1X/DAY
  11. CALCIUM [Concomitant]
     Dosage: UNK
  12. CO-Q-10 [Concomitant]
     Dosage: 100 MG, UNK
  13. LUCENTIS [Concomitant]
     Dosage: 0.5 MG
  14. FISH OIL [Concomitant]
     Dosage: 1000 MG
  15. OMEPRAZOLE [Concomitant]
     Dosage: 20 MG
  16. VITAMIN D3 [Concomitant]
     Dosage: 5000 DF, UNK
  17. CARAFATE [Concomitant]
     Dosage: 1GM/10ML

REACTIONS (3)
  - Upper-airway cough syndrome [Unknown]
  - Sneezing [Unknown]
  - Cough [Unknown]
